FAERS Safety Report 26118954 (Version 1)
Quarter: 2025Q4

REPORT INFORMATION
  Report Type: Report from Study
  Country: US (occurrence: US)
  Receive Date: 20251204
  Receipt Date: 20251204
  Transmission Date: 20260118
  Serious: Yes (Other)
  Sender: ABBVIE
  Company Number: US-ABBVIE-6169585

PATIENT
  Age: 31 Year
  Sex: Female
  Weight: 72.574 kg

DRUGS (6)
  1. HUMIRA [Suspect]
     Active Substance: ADALIMUMAB
     Indication: Crohn^s disease
     Dosage: STOP DATE TEXT: JUN-2025 OR JUL-2025, FORM STRENGTH 40 MG
     Route: 058
     Dates: start: 20120801, end: 202506
  2. HUMIRA [Suspect]
     Active Substance: ADALIMUMAB
     Dosage: START DATE TEXT: JUN-2025 OR JUL-2025, FORM STRENGTH 40 MG
     Route: 058
     Dates: start: 202506
  3. VITAMIN D [Concomitant]
     Active Substance: VITAMIN D NOS
     Indication: Product used for unknown indication
  4. MERCAPTOPURINE [Concomitant]
     Active Substance: MERCAPTOPURINE
     Indication: Crohn^s disease
  5. VITAMIN B12 [Concomitant]
     Active Substance: CYANOCOBALAMIN
     Indication: Product used for unknown indication
  6. AMJEVITA [Suspect]
     Active Substance: ADALIMUMAB-ATTO
     Indication: Product used for unknown indication
     Dosage: STRAT DATE 2025
     Route: 065

REACTIONS (4)
  - Postpartum haemorrhage [Recovered/Resolved]
  - Maternal exposure during pregnancy [Unknown]
  - Perineal injury [Recovered/Resolved]
  - Live birth [Unknown]

NARRATIVE: CASE EVENT DATE: 20250830
